FAERS Safety Report 12957367 (Version 1)
Quarter: 2016Q4

REPORT INFORMATION
  Report Type: Spontaneous
  Country: FR (occurrence: FR)
  Receive Date: 20161118
  Receipt Date: 20161118
  Transmission Date: 20170207
  Serious: Yes (Other)
  Sender: FDA-Public Use
  Company Number: FR-TEVA-710850ROM

PATIENT
  Sex: Female
  Weight: 70 kg

DRUGS (1)
  1. LEELOO 0.1 MG/0.02 MG [Suspect]
     Active Substance: ETHINYL ESTRADIOL\LEVONORGESTREL
     Indication: CONTRACEPTION
     Dosage: 1 DOSAGE FORMS DAILY;
     Route: 048
     Dates: start: 2015

REACTIONS (7)
  - Transaminases increased [Recovered/Resolved]
  - Appetite disorder [Unknown]
  - Weight increased [Unknown]
  - Hepatocellular injury [Unknown]
  - Vomiting [Recovered/Resolved]
  - Weight decreased [Recovered/Resolved]
  - Focal nodular hyperplasia [Not Recovered/Not Resolved]
